FAERS Safety Report 9931657 (Version 3)
Quarter: 2014Q1

REPORT INFORMATION
  Report Type: Spontaneous
  Country: CO (occurrence: CO)
  Receive Date: 20140228
  Receipt Date: 20140325
  Transmission Date: 20141002
  Serious: Yes (Other)
  Sender: FDA-Public Use
  Company Number: CO-VERTEX PHARMACEUTICALS INC-2014-000764

PATIENT
  Age: 62 Year
  Sex: Male
  Weight: 70 kg

DRUGS (5)
  1. INCIVO [Suspect]
     Indication: HEPATITIS C
     Dosage: 750 MG, TID
     Route: 048
     Dates: start: 20140117
  2. RIBAVIRIN [Concomitant]
     Indication: HEPATITIS C
     Dosage: DOSAGE FORM: TABLET
     Route: 048
     Dates: start: 20140117
  3. RIBAVIRIN [Concomitant]
     Dosage: 400 MG, BID
     Route: 048
  4. RIBAVIRIN [Concomitant]
     Dosage: DOSAGE FORM: TABLET
     Route: 048
  5. INTERFERON [Concomitant]
     Indication: HEPATITIS C
     Dosage: DOSAGE FORM: AMPOULES
     Route: 058
     Dates: start: 20140117

REACTIONS (6)
  - Full blood count abnormal [Unknown]
  - Thrombocytopenia [Unknown]
  - Haemoglobin decreased [Unknown]
  - Abdominal distension [Unknown]
  - Pruritus [Recovered/Resolved]
  - Rash [Recovered/Resolved]
